FAERS Safety Report 5979651-9 (Version None)
Quarter: 2008Q4

REPORT INFORMATION
  Report Type: 
  Country: None (occurrence: None)
  Receive Date: 20081204
  Receipt Date: 20081127
  Transmission Date: 20090506
  Serious: Yes (Life-Threatening, Hospitalization)
  Sender: FDA-Public Use
  Company Number: DE-MERCK-0810DEU00062

PATIENT
  Age: 71 Year
  Sex: Female
  Weight: 85 kg

DRUGS (3)
  1. JANUVIA [Suspect]
     Indication: TYPE 2 DIABETES MELLITUS
     Route: 048
     Dates: start: 20080416, end: 20080418
  2. BYETTA [Suspect]
     Indication: TYPE 2 DIABETES MELLITUS
     Route: 058
     Dates: start: 20080409, end: 20080415
  3. METFORMIN [Concomitant]
     Route: 048
     Dates: start: 20080416, end: 20080418

REACTIONS (12)
  - ASTHENIA [None]
  - COUGH [None]
  - DEHYDRATION [None]
  - GASTROINTESTINAL MUCOSAL DISORDER [None]
  - HAEMORRHOIDS [None]
  - IMPAIRED GASTRIC EMPTYING [None]
  - MENTAL DISORDER DUE TO A GENERAL MEDICAL CONDITION [None]
  - NAUSEA [None]
  - PARADOXICAL DRUG REACTION [None]
  - PYREXIA [None]
  - RENAL FAILURE ACUTE [None]
  - VOMITING [None]
